FAERS Safety Report 6397063-3 (Version None)
Quarter: 2009Q4

REPORT INFORMATION
  Report Type: 
  Country: None (occurrence: None)
  Receive Date: 20091012
  Receipt Date: 20090910
  Transmission Date: 20100525
  Serious: No
  Sender: FDA-Public Use
  Company Number: US-BAYER-200914469BCC

PATIENT
  Age: 65 Year
  Sex: Female
  Weight: 52 kg

DRUGS (5)
  1. ALEVE (CAPLET) [Suspect]
     Indication: ARTHRITIS
     Dosage: TOTAL DAILY DOSE: 220 MG  UNIT DOSE: 220 MG
     Route: 048
     Dates: start: 20090907, end: 20090907
  2. ALEVE (CAPLET) [Suspect]
     Dosage: TOTAL DAILY DOSE: 660 MG  UNIT DOSE: 220 MG
     Route: 048
     Dates: start: 20090908
  3. SIMVASTATIN [Concomitant]
     Route: 065
  4. TRICOR [Concomitant]
     Route: 065
  5. NATURE BOUNTY FISH OIL [Concomitant]
     Route: 065

REACTIONS (2)
  - OEDEMA PERIPHERAL [None]
  - PAIN IN EXTREMITY [None]
